FAERS Safety Report 16413425 (Version 1)
Quarter: 2019Q2

REPORT INFORMATION
  Report Type: Spontaneous
  Country: US (occurrence: US)
  Receive Date: 20190502
  Receipt Date: 20190502
  Transmission Date: 20190711
  Serious: Yes (Hospitalization)
  Sender: FDA-Public Use
  Company Number: None

PATIENT
  Age: 53 Year
  Sex: Male
  Weight: 92.5 kg

DRUGS (1)
  1. VITMAMIN D3, 50,000 IU [Suspect]
     Active Substance: CHOLECALCIFEROL
     Indication: VITAMIN D DEFICIENCY
     Route: 048
     Dates: start: 20170720

REACTIONS (9)
  - Vomiting [None]
  - Food intolerance [None]
  - Dyspnoea [None]
  - Gastroenteritis viral [None]
  - Asthenia [None]
  - Chest discomfort [None]
  - Nausea [None]
  - Abdominal pain [None]
  - Rash pruritic [None]

NARRATIVE: CASE EVENT DATE: 20181223
